FAERS Safety Report 9304615 (Version 1)
Quarter: 2013Q2

REPORT INFORMATION
  Report Type: Spontaneous
  Country: FR (occurrence: FR)
  Receive Date: 20130523
  Receipt Date: 20130523
  Transmission Date: 20140414
  Serious: Yes (Life-Threatening, Hospitalization)
  Sender: FDA-Public Use
  Company Number: FR-ROCHE-1227668

PATIENT
  Age: 61 Year
  Sex: Male

DRUGS (4)
  1. MABTHERA [Suspect]
     Indication: PEMPHIGUS
     Dosage: LAST DOSE ON 05/MAR/2013
     Route: 040
     Dates: start: 20130219
  2. CORTANCYL [Suspect]
     Indication: PRODUCT USED FOR UNKNOWN INDICATION
     Route: 047
     Dates: start: 2003
  3. AMLOR [Concomitant]
  4. OLMESARTAN [Concomitant]

REACTIONS (2)
  - Deep vein thrombosis [Recovered/Resolved with Sequelae]
  - Pulmonary embolism [Recovered/Resolved with Sequelae]
